FAERS Safety Report 12451425 (Version 1)
Quarter: 2016Q2

REPORT INFORMATION
  Report Type: Spontaneous
  Country: US (occurrence: None)
  Receive Date: 20160608
  Receipt Date: 20160608
  Transmission Date: 20160815
  Serious: No
  Sender: FDA-Public Use
  Company Number: None

PATIENT
  Age: 29 Year
  Sex: Female

DRUGS (12)
  1. PULMOZYME [Concomitant]
     Active Substance: DORNASE ALFA
  2. LEVOFLOXACIN. [Concomitant]
     Active Substance: LEVOFLOXACIN
  3. CIPRO [Concomitant]
     Active Substance: CIPROFLOXACIN HYDROCHLORIDE
  4. ALPRAZOLAM. [Concomitant]
     Active Substance: ALPRAZOLAM
  5. ORKAMBI [Suspect]
     Active Substance: IVACAFTOR\LUMACAFTOR
     Indication: CYSTIC FIBROSIS
     Dosage: 400-250MG BID PO
     Route: 048
     Dates: start: 20160217
  6. FENTANYL. [Concomitant]
     Active Substance: FENTANYL
  7. KEPPRA [Concomitant]
     Active Substance: LEVETIRACETAM
  8. TRAMADOL. [Concomitant]
     Active Substance: TRAMADOL
  9. CLONAZEPAM. [Concomitant]
     Active Substance: CLONAZEPAM
  10. SUMATRIPTAN. [Concomitant]
     Active Substance: SUMATRIPTAN
  11. PREDNISONE. [Concomitant]
     Active Substance: PREDNISONE
  12. VENLAFAXINE [Concomitant]
     Active Substance: VENLAFAXINE HYDROCHLORIDE

REACTIONS (4)
  - Cough [None]
  - Chest pain [None]
  - Dyspnoea [None]
  - Rhinorrhoea [None]
